FAERS Safety Report 8176422 (Version 7)
Quarter: 2013Q4

REPORT INFORMATION
  Report Type: Report from Study
  Country: GB (occurrence: GB)
  Receive Date: 20111011
  Receipt Date: 20131204
  Transmission Date: 20140711
  Serious: Yes (Life-Threatening, Hospitalization)
  Sender: FDA-Public Use
  Company Number: GB-ROCHE-1000308

PATIENT
  Age: 57 Year
  Sex: Male
  Weight: 92.8 kg

DRUGS (6)
  1. VEMURAFENIB [Suspect]
     Indication: METASTATIC MALIGNANT MELANOMA
     Dosage: TEMPORARILY INTERRUPTED
     Route: 048
     Dates: start: 20110920, end: 20110924
  2. VEMURAFENIB [Suspect]
     Dosage: DOSE REDUCED
     Route: 048
     Dates: start: 20111019
  3. SERTRALINE [Concomitant]
     Route: 065
     Dates: start: 20110601
  4. PERINDOPRIL [Concomitant]
     Route: 065
     Dates: start: 20101201
  5. PROPRANOLOL [Concomitant]
     Route: 065
     Dates: start: 20101201
  6. OMEPRAZOLE [Concomitant]
     Route: 065
     Dates: start: 20111003

REACTIONS (2)
  - Tumour haemorrhage [Recovered/Resolved with Sequelae]
  - Fall [Unknown]
